FAERS Safety Report 22345555 (Version 1)
Quarter: 2023Q2

REPORT INFORMATION
  Report Type: Report from Study
  Country: JP (occurrence: JP)
  Receive Date: 20230519
  Receipt Date: 20230519
  Transmission Date: 20230722
  Serious: Yes (Hospitalization, Other)
  Sender: FDA-Public Use
  Company Number: JP-CHUGAI-2023006470

PATIENT
  Age: 74 Year
  Sex: Female

DRUGS (95)
  1. TOCILIZUMAB [Suspect]
     Active Substance: TOCILIZUMAB
     Indication: Cytokine release syndrome
     Dosage: 480 MILLIGRAM, SINGLE
     Route: 042
     Dates: start: 20210222, end: 20210222
  2. TOCILIZUMAB [Suspect]
     Active Substance: TOCILIZUMAB
     Dosage: 500 MILLIGRAM, SINGLE
     Route: 041
     Dates: start: 20210227, end: 20210227
  3. LENOGRASTIM [Suspect]
     Active Substance: LENOGRASTIM
     Indication: Product used for unknown indication
     Dosage: 100 MICROGRAM, PRN
     Route: 058
     Dates: start: 20210608
  4. LENOGRASTIM [Suspect]
     Active Substance: LENOGRASTIM
     Dosage: 100 MICROGRAM, PRN
     Route: 058
     Dates: start: 20210614
  5. LENOGRASTIM [Suspect]
     Active Substance: LENOGRASTIM
     Dosage: 100 MICROGRAM, SINGLE
     Route: 058
     Dates: start: 20210823
  6. LENOGRASTIM [Suspect]
     Active Substance: LENOGRASTIM
     Dosage: 100 MICROGRAM, PRN
     Route: 058
     Dates: start: 20210906
  7. FELODIPINE [Concomitant]
     Active Substance: FELODIPINE
     Dosage: 15 MILLIGRAM, TID
     Route: 048
  8. FELODIPINE [Concomitant]
     Active Substance: FELODIPINE
     Dosage: 15 MILLIGRAM, TID
     Route: 048
  9. TRIPAMIDE [Concomitant]
     Active Substance: TRIPAMIDE
     Dosage: 15 MILLIGRAM, QD
     Route: 048
  10. SITAGLIPTIN PHOSPHATE [Concomitant]
     Active Substance: SITAGLIPTIN PHOSPHATE
     Dosage: 50 MILLIGRAM, QD
     Route: 048
  11. SITAGLIPTIN PHOSPHATE [Concomitant]
     Active Substance: SITAGLIPTIN PHOSPHATE
     Dosage: 50 MILLIGRAM, QD
     Route: 048
  12. INSULIN HUMAN [Concomitant]
     Active Substance: INSULIN HUMAN
     Dosage: 14 INTERNATIONAL UNIT, BID
     Route: 058
  13. INSULIN HUMAN [Concomitant]
     Active Substance: INSULIN HUMAN
     Dosage: 26 INTERNATIONAL UNIT, TID
     Route: 058
  14. INSULIN HUMAN [Concomitant]
     Active Substance: INSULIN HUMAN
     Dosage: 34 OTHER, TID
     Route: 058
  15. INSULIN HUMAN [Concomitant]
     Active Substance: INSULIN HUMAN
     Dosage: 48 INTERNATIONAL UNIT, TID
     Route: 058
  16. INSULIN HUMAN [Concomitant]
     Active Substance: INSULIN HUMAN
     Dosage: 8 INTERNATIONAL UNIT, BID
     Route: 058
  17. INSULIN HUMAN [Concomitant]
     Active Substance: INSULIN HUMAN
     Dosage: 10 INTERNATIONAL UNIT, BID
     Route: 058
  18. INSULIN HUMAN [Concomitant]
     Active Substance: INSULIN HUMAN
     Dosage: 10 INTERNATIONAL UNIT, TID
     Route: 058
  19. INSULIN HUMAN [Concomitant]
     Active Substance: INSULIN HUMAN
     Dosage: 12 INTERNATIONAL UNIT, TID
     Route: 058
  20. INSULIN HUMAN [Concomitant]
     Active Substance: INSULIN HUMAN
     Dosage: 50 INTERNATIONAL UNIT, TID
     Route: 058
  21. INSULIN HUMAN [Concomitant]
     Active Substance: INSULIN HUMAN
     Dosage: 48 INTERNATIONAL UNIT, BID
     Route: 058
  22. INSULIN HUMAN [Concomitant]
     Active Substance: INSULIN HUMAN
     Dosage: 66 INTERNATIONAL UNIT, TID
     Route: 058
  23. INSULIN HUMAN [Concomitant]
     Active Substance: INSULIN HUMAN
     Dosage: 10 INTERNATIONAL UNIT, BID
     Route: 058
  24. INSULIN HUMAN [Concomitant]
     Active Substance: INSULIN HUMAN
     Dosage: 8 INTERNATIONAL UNIT, BID
     Route: 058
  25. INSULIN HUMAN [Concomitant]
     Active Substance: INSULIN HUMAN
     Dosage: 10 INTERNATIONAL UNIT, BID
     Route: 058
  26. INSULIN HUMAN [Concomitant]
     Active Substance: INSULIN HUMAN
     Dosage: 54 INTERNATIONAL UNIT, TID
     Route: 058
  27. INSULIN HUMAN [Concomitant]
     Active Substance: INSULIN HUMAN
     Dosage: 64 INTERNATIONAL UNIT, TID
     Route: 058
  28. INSULIN HUMAN [Concomitant]
     Active Substance: INSULIN HUMAN
     Dosage: 60 INTERNATIONAL UNIT, TID
     Route: 058
  29. INSULIN HUMAN [Concomitant]
     Active Substance: INSULIN HUMAN
     Dosage: 64 INTERNATIONAL UNIT, TID
     Route: 058
  30. INSULIN HUMAN [Concomitant]
     Active Substance: INSULIN HUMAN
     Dosage: 14 INTERNATIONAL UNIT, TID
     Route: 058
  31. INSULIN HUMAN [Concomitant]
     Active Substance: INSULIN HUMAN
     Dosage: 62 INTERNATIONAL UNIT, TID
     Route: 058
  32. INSULIN HUMAN [Concomitant]
     Active Substance: INSULIN HUMAN
     Dosage: 58 INTERNATIONAL UNIT, TID
     Route: 058
  33. INSULIN HUMAN [Concomitant]
     Active Substance: INSULIN HUMAN
     Dosage: 60 INTERNATIONAL UNIT, TID
     Route: 058
  34. INSULIN HUMAN [Concomitant]
     Active Substance: INSULIN HUMAN
     Dosage: 56 INTERNATIONAL UNIT, TID
     Route: 058
  35. INSULIN HUMAN [Concomitant]
     Active Substance: INSULIN HUMAN
     Dosage: 60 INTERNATIONAL UNIT, TID
     Route: 058
  36. INSULIN HUMAN [Concomitant]
     Active Substance: INSULIN HUMAN
     Dosage: 10 INTERNATIONAL UNIT, BID
     Route: 058
  37. INSULIN HUMAN [Concomitant]
     Active Substance: INSULIN HUMAN
     Dosage: 16 INTERNATIONAL UNIT, TID
     Route: 058
  38. INSULIN HUMAN [Concomitant]
     Active Substance: INSULIN HUMAN
     Dosage: 14 INTERNATIONAL UNIT, TID
     Route: 058
  39. INSULIN HUMAN [Concomitant]
     Active Substance: INSULIN HUMAN
     Dosage: 10 INTERNATIONAL UNIT, BID
     Route: 058
  40. ACETAMINOPHEN [Concomitant]
     Active Substance: ACETAMINOPHEN
     Dosage: 1600 MILLIGRAM, QID
     Route: 048
  41. ACETAMINOPHEN [Concomitant]
     Active Substance: ACETAMINOPHEN
     Dosage: 1600 MILLIGRAM, QID
     Route: 048
  42. ACETAMINOPHEN [Concomitant]
     Active Substance: ACETAMINOPHEN
     Dosage: 1000 MILLIGRAM, PRN
     Route: 042
  43. ACETAMINOPHEN [Concomitant]
     Active Substance: ACETAMINOPHEN
     Dosage: 1600 MILLIGRAM, QID
     Route: 048
  44. ACETAMINOPHEN [Concomitant]
     Active Substance: ACETAMINOPHEN
     Dosage: 1600 MILLIGRAM, QID
     Route: 048
  45. ACETAMINOPHEN [Concomitant]
     Active Substance: ACETAMINOPHEN
     Dosage: 1600 MILLIGRAM, QID
     Route: 048
  46. CEFEPIME HYDROCHLORIDE [Concomitant]
     Active Substance: CEFEPIME HYDROCHLORIDE
     Indication: Infection prophylaxis
     Dosage: 4 GRAM, BID
     Route: 042
  47. CEFEPIME HYDROCHLORIDE [Concomitant]
     Active Substance: CEFEPIME HYDROCHLORIDE
     Dosage: 4 GRAM, BID
     Route: 042
  48. CEFEPIME HYDROCHLORIDE [Concomitant]
     Active Substance: CEFEPIME HYDROCHLORIDE
     Dosage: 4 GRAM, BID
     Route: 042
  49. CEFEPIME HYDROCHLORIDE [Concomitant]
     Active Substance: CEFEPIME HYDROCHLORIDE
     Dosage: 4 GRAM, BID
     Route: 042
  50. ISOPHANE INSULIN [Concomitant]
     Active Substance: INSULIN NOS
     Dosage: 8 INTERNATIONAL UNIT, QD
     Route: 058
  51. ISOPHANE INSULIN [Concomitant]
     Active Substance: INSULIN NOS
     Dosage: 10 INTERNATIONAL UNIT, QD
     Route: 058
  52. ISOPHANE INSULIN [Concomitant]
     Active Substance: INSULIN NOS
     Dosage: 8 INTERNATIONAL UNIT, QD
     Route: 058
  53. ISOPHANE INSULIN [Concomitant]
     Active Substance: INSULIN NOS
     Dosage: 6 INTERNATIONAL UNIT, QD
     Route: 058
  54. ISOPHANE INSULIN [Concomitant]
     Active Substance: INSULIN NOS
     Dosage: 8 INTERNATIONAL UNIT, QD
     Route: 058
  55. ISOPHANE INSULIN [Concomitant]
     Active Substance: INSULIN NOS
     Dosage: 6 INTERNATIONAL UNIT, QD
     Route: 058
  56. ISOPHANE INSULIN [Concomitant]
     Active Substance: INSULIN NOS
     Dosage: 6 INTERNATIONAL UNIT, QD
     Route: 058
  57. ISOPHANE INSULIN [Concomitant]
     Active Substance: INSULIN NOS
     Dosage: 6 INTERNATIONAL UNIT, QD
     Route: 058
  58. URSODIOL [Concomitant]
     Active Substance: URSODIOL
     Dosage: 600 MILLIGRAM, TID
     Route: 048
  59. URSODIOL [Concomitant]
     Active Substance: URSODIOL
     Dosage: 300 MILLIGRAM, TID
     Route: 048
  60. SODIUM CHLORIDE [Concomitant]
     Active Substance: SODIUM CHLORIDE
     Dosage: 500 MILLILITER, QD
     Route: 042
  61. HYDROCORTISONE SODIUM SUCCINATE [Concomitant]
     Active Substance: HYDROCORTISONE SODIUM SUCCINATE
     Dosage: 100 MILLIGRAM, PRN
     Route: 042
  62. HYDROCORTISONE SODIUM SUCCINATE [Concomitant]
     Active Substance: HYDROCORTISONE SODIUM SUCCINATE
     Dosage: 50 MILLIGRAM, SINGLE
     Route: 042
  63. PREDNISOLONE ACETATE [Concomitant]
     Active Substance: PREDNISOLONE ACETATE
     Dosage: 20 MILLIGRAM, PRN
     Route: 042
  64. PREDNISOLONE [Concomitant]
     Active Substance: PREDNISOLONE
     Dosage: 100 MILLIGRAM, QD
     Route: 048
  65. PREDNISOLONE [Concomitant]
     Active Substance: PREDNISOLONE
     Dosage: 100 MILLIGRAM, SINGLE
     Route: 048
  66. PREDNISOLONE [Concomitant]
     Active Substance: PREDNISOLONE
     Dosage: 100 MILLIGRAM, SINGLE
     Route: 048
  67. PREDNISOLONE [Concomitant]
     Active Substance: PREDNISOLONE
     Dosage: 60 MILLIGRAM, BID
     Route: 048
  68. PREDNISOLONE [Concomitant]
     Active Substance: PREDNISOLONE
     Dosage: 100 MILLIGRAM, SINGLE
     Route: 048
  69. PREDNISOLONE [Concomitant]
     Active Substance: PREDNISOLONE
     Dosage: 50 MILLIGRAM, BID
     Route: 048
  70. PREDNISOLONE [Concomitant]
     Active Substance: PREDNISOLONE
     Dosage: 20 MILLIGRAM, BID
     Route: 048
  71. PREDNISOLONE [Concomitant]
     Active Substance: PREDNISOLONE
     Dosage: 10 MILLIGRAM, BID
     Route: 048
  72. LEVOFLOXACIN HEMIHYDRATE [Concomitant]
     Active Substance: LEVOFLOXACIN
     Dosage: 2 GTT DROPS, TID
     Route: 047
  73. LEVOFLOXACIN HEMIHYDRATE [Concomitant]
     Active Substance: LEVOFLOXACIN
     Dosage: 500 MILLIGRAM, QD
     Route: 048
  74. LEVOFLOXACIN HEMIHYDRATE [Concomitant]
     Active Substance: LEVOFLOXACIN
     Dosage: 500 MILLIGRAM, QD
     Route: 048
  75. POTASSIUM CHLORIDE [Concomitant]
     Active Substance: POTASSIUM CHLORIDE
     Dosage: 40 MEQ, BID
     Route: 042
  76. POTASSIUM CHLORIDE [Concomitant]
     Active Substance: POTASSIUM CHLORIDE
     Dosage: 1200 MILLIGRAM, BID
     Route: 048
  77. POTASSIUM CHLORIDE [Concomitant]
     Active Substance: POTASSIUM CHLORIDE
     Dosage: 40 MEQ, BID
     Route: 042
  78. POTASSIUM CHLORIDE [Concomitant]
     Active Substance: POTASSIUM CHLORIDE
     Dosage: 2400 MILLIGRAM, BID
     Route: 048
  79. POTASSIUM CHLORIDE [Concomitant]
     Active Substance: POTASSIUM CHLORIDE
     Dosage: 2400 MILLIGRAM, BID
     Route: 048
  80. POTASSIUM CHLORIDE [Concomitant]
     Active Substance: POTASSIUM CHLORIDE
     Dosage: 2400 MILLIGRAM, BID
     Route: 048
  81. AMLODIPINE BESYLATE [Concomitant]
     Active Substance: AMLODIPINE BESYLATE
     Dosage: 10 MILLIGRAM, BID
     Route: 048
  82. AMLODIPINE BESYLATE [Concomitant]
     Active Substance: AMLODIPINE BESYLATE
     Dosage: 10 MILLIGRAM, BID
     Route: 048
  83. TRICHLORMETHIAZIDE [Concomitant]
     Active Substance: TRICHLORMETHIAZIDE
     Dosage: 2 MILLIGRAM, QD
     Route: 048
  84. REPAGLINIDE [Concomitant]
     Active Substance: REPAGLINIDE
     Dosage: 1.5 MILLIGRAM, TID
     Route: 048
  85. REPAGLINIDE [Concomitant]
     Active Substance: REPAGLINIDE
     Dosage: 0.75 MILLIGRAM, TID
     Route: 048
  86. VORICONAZOLE [Concomitant]
     Active Substance: VORICONAZOLE
     Indication: Infection prophylaxis
     Dosage: 300 MILLIGRAM, BID
     Route: 048
  87. VORICONAZOLE [Concomitant]
     Active Substance: VORICONAZOLE
     Dosage: 200 MILLIGRAM, BID
     Route: 048
  88. ACYCLOVIR [Concomitant]
     Active Substance: ACYCLOVIR
     Dosage: 200 MILLIGRAM, QD
     Route: 048
  89. PENTAMIDINE ISETHIONATE [Concomitant]
     Active Substance: PENTAMIDINE ISETHIONATE
     Dosage: 300 MILLIGRAM, ONCE/MONTH
     Route: 055
  90. ALBUTEROL SULFATE [Concomitant]
     Active Substance: ALBUTEROL SULFATE
     Dosage: 2 PUFF, ONCE/MONTH
     Route: 055
  91. AMOXICILLIN\CLAVULANATE POTASSIUM [Concomitant]
     Active Substance: AMOXICILLIN\CLAVULANATE POTASSIUM
     Dosage: 3 DOSAGE FORM, TID
     Route: 048
  92. FENTANYL CITRATE [Concomitant]
     Active Substance: FENTANYL CITRATE
     Dosage: 0.1 MILLIGRAM, SINGLE
     Route: 042
  93. OMEPRAZOLE SODIUM [Concomitant]
     Active Substance: OMEPRAZOLE SODIUM
     Dosage: 40 MILLIGRAM, BID
     Route: 042
  94. SODIUM PICOSULFATE [Concomitant]
     Active Substance: SODIUM PICOSULFATE
     Dosage: 15 GTT DROPS, PRN
     Route: 048
  95. ESOMEPRAZOLE MAGNESIUM [Concomitant]
     Active Substance: ESOMEPRAZOLE MAGNESIUM
     Dosage: 20 MILLIGRAM, QD
     Route: 048

REACTIONS (3)
  - Hypoxia [Unknown]
  - Pneumonia [Recovered/Resolved]
  - Hypokalaemia [Recovered/Resolved]

NARRATIVE: CASE EVENT DATE: 20210407
